FAERS Safety Report 21814767 (Version 3)
Quarter: 2023Q1

REPORT INFORMATION
  Report Type: Spontaneous
  Country: ES (occurrence: ES)
  Receive Date: 20230104
  Receipt Date: 20230113
  Transmission Date: 20230418
  Serious: Yes (Hospitalization, Other)
  Sender: FDA-Public Use
  Company Number: ES-STADA-265692

PATIENT
  Age: 92 Year
  Sex: Female

DRUGS (4)
  1. GABAPENTIN [Suspect]
     Active Substance: GABAPENTIN
     Indication: Agitation
     Dosage: ADMINISTERED HIGH DOSE.
     Route: 065
  2. QUETIAPINE [Suspect]
     Active Substance: QUETIAPINE
     Indication: Agitation
     Dosage: ADMINISTERED HIGH DOSE
     Route: 065
  3. ZOLPIDEM [Suspect]
     Active Substance: ZOLPIDEM TARTRATE
     Indication: Agitation
     Dosage: ADMINISTERED HIGH DOSE
     Route: 065
  4. TRAZODONE [Suspect]
     Active Substance: TRAZODONE HYDROCHLORIDE
     Indication: Agitation
     Dosage: ADMINISTERED HIGH DOSE.
     Route: 065

REACTIONS (4)
  - Delirium [Recovering/Resolving]
  - Gait apraxia [Recovering/Resolving]
  - Therapeutic product effect incomplete [Unknown]
  - Overdose [Unknown]
